FAERS Safety Report 9295205 (Version 1)
Quarter: 2013Q2

REPORT INFORMATION
  Report Type: Spontaneous
  Country: FR (occurrence: FR)
  Receive Date: 20130516
  Receipt Date: 20130516
  Transmission Date: 20140414
  Serious: Yes (Other)
  Sender: FDA-Public Use
  Company Number: FR-RB-013039-09

PATIENT
  Age: 35 Year
  Sex: Female

DRUGS (6)
  1. SUBUTEX [Suspect]
     Route: 060
  2. SUBUTEX [Suspect]
     Indication: DRUG DEPENDENCE
     Route: 060
     Dates: start: 200901, end: 200904
  3. NICOTINE [Suspect]
     Indication: TOBACCO USER
     Dosage: 5 CIGARETTES DAILY DURING PREGNANCY
     Route: 055
  4. EFFEXOR [Concomitant]
     Indication: PRODUCT USED FOR UNKNOWN INDICATION
     Dosage: DOSING INFORMATION UNKNOWN
     Route: 065
     Dates: start: 200808
  5. LAROXYL [Concomitant]
     Indication: PRODUCT USED FOR UNKNOWN INDICATION
     Dosage: DOSING INFORMATION UNKNOWN
     Route: 065
  6. SERESTA [Concomitant]
     Indication: PRODUCT USED FOR UNKNOWN INDICATION
     Dosage: DOSING INFORMATION UNKNOWN

REACTIONS (3)
  - Exposure during pregnancy [Recovered/Resolved]
  - Foetal arrhythmia [Recovered/Resolved]
  - Foetal growth restriction [Recovered/Resolved]
